FAERS Safety Report 5237447-X (Version None)
Quarter: 2007Q1

REPORT INFORMATION
  Report Type: 
  Country: None (occurrence: None)
  Receive Date: 20070213
  Receipt Date: 20070201
  Transmission Date: 20070707
  Serious: Yes (Death, Hospitalization, Other)
  Sender: FDA-Public Use
  Company Number: US-PFIZER INC-2007009350

PATIENT
  Sex: Male

DRUGS (2)
  1. LYRICA [Suspect]
     Indication: NEUROPATHY
  2. PERCOCET [Concomitant]

REACTIONS (2)
  - DEATH [None]
  - DYSPNOEA [None]
